FAERS Safety Report 9159572 (Version 1)
Quarter: 2013Q1

REPORT INFORMATION
  Report Type: Spontaneous
  Country: DE (occurrence: None)
  Receive Date: 20130214
  Receipt Date: 20130214
  Transmission Date: 20140127
  Serious: Yes (Other)
  Sender: FDA-Public Use
  Company Number: GER/FER/13/0027902

PATIENT
  Age: 85 Year
  Sex: Female
  Weight: 70 kg

DRUGS (3)
  1. RAMIPRIL COMP [Suspect]
     Indication: PRODUCT USED FOR UNKNOWN INDICATION
     Dosage: 9 DOSAGE FORMS, 1 IN 1 TOTAL, ORAL
     Route: 048
     Dates: start: 20130207, end: 20130207
  2. AMLODIPIN [Suspect]
     Indication: PRODUCT USED FOR UNKNOWN INDICATION
     Dosage: 30 MG, 1 IN 1 TOTAL, ORAL
     Dates: start: 20130207, end: 20130207
  3. BETAHISTINE [Suspect]
     Indication: PRODUCT USED FOR UNKNOWN INDICATION
     Dosage: 42 MG, 1 IN 1 TOTAL, ORAL
     Route: 048
     Dates: start: 20130207, end: 20130207

REACTIONS (1)
  - Accidental overdose [None]
